FAERS Safety Report 16137127 (Version 1)
Quarter: 2019Q2

REPORT INFORMATION
  Report Type: Other
  Country: GB (occurrence: GB)
  Receive Date: 20190401
  Receipt Date: 20190401
  Transmission Date: 20190711
  Serious: No
  Sender: FDA-Public Use
  Company Number: GB-LUPIN PHARMACEUTICALS INC.-2018-03434

PATIENT
  Age: 49 Year
  Sex: Female
  Weight: 74 kg

DRUGS (3)
  1. SERTRALINE [Suspect]
     Active Substance: SERTRALINE HYDROCHLORIDE
     Indication: DEPRESSED MOOD
     Dosage: 50 MG, UNK (INCREASED FROM 50MG TO 100MG TO FURTHER AID MOOD PROBLEMS)
     Route: 065
     Dates: start: 20171128, end: 20180402
  2. SERTRALINE [Suspect]
     Active Substance: SERTRALINE HYDROCHLORIDE
     Dosage: 100 MG, UNK (INCREASED FROM 50MG TO 100MG TO FURTHER AID MOOD PROBLEMS)
     Route: 065
     Dates: start: 20180402
  3. OXYTETRACYCLINE [Concomitant]
     Active Substance: OXYTETRACYCLINE
     Indication: ROSACEA
     Dosage: 2 DF, QD (AS NEEDED)
     Route: 065
     Dates: start: 20180130

REACTIONS (5)
  - Arthralgia [Recovering/Resolving]
  - Peripheral swelling [Recovering/Resolving]
  - Neck pain [Recovering/Resolving]
  - Pruritus [Recovering/Resolving]
  - Joint swelling [Recovering/Resolving]

NARRATIVE: CASE EVENT DATE: 20180407
